FAERS Safety Report 6868619-6 (Version None)
Quarter: 2010Q3

REPORT INFORMATION
  Report Type: 
  Country: None (occurrence: None)
  Receive Date: 20100722
  Receipt Date: 20080628
  Transmission Date: 20110219
  Serious: No
  Sender: FDA-Public Use
  Company Number: US-PFIZER INC-2008046877

PATIENT
  Sex: Female
  Weight: 111.13 kg

DRUGS (6)
  1. CHANTIX [Suspect]
     Indication: SMOKING CESSATION THERAPY
     Route: 048
     Dates: start: 20080522, end: 20080528
  2. PREDNISONE TAB [Suspect]
     Dates: start: 20080517, end: 20080524
  3. LEVAQUIN [Suspect]
     Dates: start: 20080519, end: 20080601
  4. ANTIBIOTICS [Concomitant]
     Indication: PNEUMONIA
  5. PRILOSEC [Concomitant]
  6. LORTAB [Concomitant]

REACTIONS (6)
  - FLATULENCE [None]
  - HEADACHE [None]
  - INSOMNIA [None]
  - NAUSEA [None]
  - RASH [None]
  - VOMITING [None]
